FAERS Safety Report 23410812 (Version 1)
Quarter: 2024Q1

REPORT INFORMATION
  Report Type: Spontaneous
  Country: US (occurrence: US)
  Receive Date: 20240117
  Receipt Date: 20240117
  Transmission Date: 20240410
  Serious: No
  Sender: FDA-Public Use
  Company Number: US-SA-SAC20240110000599

PATIENT
  Sex: Male
  Weight: 105.6 kg

DRUGS (4)
  1. DUPIXENT [Suspect]
     Active Substance: DUPILUMAB
     Indication: Dermatitis atopic
     Dosage: 300 MG, QOW
     Route: 058
  2. LORATADINE [Concomitant]
     Active Substance: LORATADINE
  3. OMEPRAZOLE [Concomitant]
     Active Substance: OMEPRAZOLE
  4. VITAMINS NOS [Concomitant]
     Active Substance: VITAMINS

REACTIONS (4)
  - Rash [Unknown]
  - Skin irritation [Unknown]
  - Vision blurred [Unknown]
  - Eye irritation [Unknown]
